FAERS Safety Report 6036656-X (Version None)
Quarter: 2009Q1

REPORT INFORMATION
  Report Type: 
  Country: None (occurrence: None)
  Receive Date: 20090114
  Receipt Date: 20090109
  Transmission Date: 20090719
  Serious: Yes (Other)
  Sender: FDA-Public Use
  Company Number: US-ASTRAZENECA-2009UW00238

PATIENT
  Age: 57 Year
  Sex: Male
  Weight: 95.3 kg

DRUGS (6)
  1. SEROQUEL [Suspect]
     Indication: SCHIZOPHRENIA
     Route: 048
     Dates: start: 20010101
  2. SEROQUEL [Suspect]
     Indication: SCHIZOAFFECTIVE DISORDER
     Route: 048
     Dates: start: 20010101
  3. SEROQUEL [Suspect]
     Indication: BIPOLAR DISORDER
     Route: 048
     Dates: start: 20010101
  4. SEROQUEL [Suspect]
     Indication: DELUSION OF GRANDEUR
     Route: 048
     Dates: start: 20010101
  5. POTASSIUM CHLORIDE [Concomitant]
  6. GABITRIL [Concomitant]

REACTIONS (7)
  - DELUSION [None]
  - DIVERTICULITIS [None]
  - EMOTIONAL DISORDER [None]
  - INSOMNIA [None]
  - LIVER DISORDER [None]
  - SELF-INJURIOUS IDEATION [None]
  - SOCIAL AVOIDANT BEHAVIOUR [None]
